FAERS Safety Report 17714157 (Version 1)
Quarter: 2020Q2

REPORT INFORMATION
  Report Type: Spontaneous
  Country: US (occurrence: US)
  Receive Date: 20200425
  Receipt Date: 20200425
  Transmission Date: 20200714
  Serious: Yes (Hospitalization)
  Sender: FDA-Public Use
  Company Number: None

PATIENT
  Age: 30 Year
  Sex: Male
  Weight: 100 kg

DRUGS (5)
  1. IFOSFAMIDE. [Suspect]
     Active Substance: IFOSFAMIDE
     Dates: end: 20200225
  2. TAXOL [Suspect]
     Active Substance: PACLITAXEL
     Dates: end: 20200225
  3. G-CSF (FILGRASTIM, AMGEN) [Suspect]
     Active Substance: FILGRASTIM
     Dates: end: 20200229
  4. ETOPOSIDE (VP-16) [Suspect]
     Active Substance: ETOPOSIDE
     Dates: end: 20200316
  5. CARBOPLATIN. [Suspect]
     Active Substance: CARBOPLATIN
     Dates: end: 20200316

REACTIONS (6)
  - Packed red blood cell transfusion [None]
  - Febrile neutropenia [None]
  - Platelet transfusion [None]
  - Diarrhoea [None]
  - Mucosal inflammation [None]
  - Hypokalaemia [None]

NARRATIVE: CASE EVENT DATE: 20200320
